FAERS Safety Report 23772334 (Version 2)
Quarter: 2024Q2

REPORT INFORMATION
  Report Type: Spontaneous
  Country: US (occurrence: US)
  Receive Date: 20240423
  Receipt Date: 20240508
  Transmission Date: 20240717
  Serious: Yes (Hospitalization, Other)
  Sender: FDA-Public Use
  Company Number: US-BAYER-2024A054216

PATIENT
  Age: 57 Year
  Sex: Female

DRUGS (1)
  1. KERENDIA [Suspect]
     Active Substance: FINERENONE
     Dosage: UNK

REACTIONS (7)
  - Urinary tract infection [None]
  - Gait disturbance [None]
  - Myalgia [None]
  - Muscular weakness [None]
  - Confusional state [None]
  - Illness [None]
  - Incorrect product administration duration [None]
